FAERS Safety Report 16431377 (Version 1)
Quarter: 2019Q2

REPORT INFORMATION
  Report Type: Spontaneous
  Country: US (occurrence: US)
  Receive Date: 20190614
  Receipt Date: 20190614
  Transmission Date: 20190711
  Serious: Yes (Hospitalization)
  Sender: FDA-Public Use
  Company Number: US-PFIZER INC-2019251449

PATIENT
  Age: 61 Year
  Sex: Male

DRUGS (1)
  1. VIAGRA [Suspect]
     Active Substance: SILDENAFIL CITRATE
     Indication: CARDIAC DISORDER
     Dosage: ONCE PER WEEK OR ONCE PER TWO WEEKS

REACTIONS (4)
  - Product use in unapproved indication [Unknown]
  - Palpitations [Unknown]
  - Off label use [Unknown]
  - Arrhythmia [Unknown]
